FAERS Safety Report 7972895-6 (Version None)
Quarter: 2011Q4

REPORT INFORMATION
  Report Type: 
  Country: None (occurrence: None)
  Receive Date: 20111213
  Receipt Date: 20110825
  Transmission Date: 20120403
  Serious: Yes (Hospitalization)
  Sender: FDA-Public Use
  Company Number: US-MYLANLABS-2011S1017758

PATIENT
  Age: 69 Year
  Sex: Male

DRUGS (9)
  1. SAXAGLIPTIN [Suspect]
     Indication: TYPE 2 DIABETES MELLITUS
     Dates: start: 20100806
  2. NOVOLOG [Suspect]
     Indication: TYPE 2 DIABETES MELLITUS
  3. DOXYCYCLINE [Suspect]
     Indication: STAPHYLOCOCCAL INFECTION
  4. AVANDIA [Suspect]
     Indication: TYPE 2 DIABETES MELLITUS
  5. ASPIRIN [Concomitant]
     Dates: start: 20100730
  6. HUMULIN INSULIN [Suspect]
     Indication: TYPE 2 DIABETES MELLITUS
  7. PLACEBO [Suspect]
     Indication: TYPE 2 DIABETES MELLITUS
     Dates: start: 20100806
  8. BACTRIM [Suspect]
     Indication: STAPHYLOCOCCAL INFECTION
  9. EZETIMIBE [Concomitant]
     Dates: start: 20100730

REACTIONS (1)
  - VOMITING [None]
